FAERS Safety Report 21259774 (Version 2)
Quarter: 2022Q3

REPORT INFORMATION
  Report Type: Report from Study
  Country: US (occurrence: US)
  Receive Date: 20220826
  Receipt Date: 20220902
  Transmission Date: 20221027
  Serious: No
  Sender: FDA-Public Use
  Company Number: US-NOVARTISTESTPH-NVSC2022US188794

PATIENT
  Sex: Male

DRUGS (1)
  1. KESIMPTA [Suspect]
     Active Substance: OFATUMUMAB
     Indication: Product used for unknown indication
     Dosage: UNK
     Route: 065
     Dates: start: 20220821

REACTIONS (7)
  - Malaise [Unknown]
  - Pain [Unknown]
  - Fatigue [Unknown]
  - Back pain [Unknown]
  - Nausea [Unknown]
  - Pyrexia [Unknown]
  - Headache [Unknown]
